FAERS Safety Report 5012299-1 (Version None)
Quarter: 2006Q2

REPORT INFORMATION
  Report Type: 
  Country: None (occurrence: None)
  Receive Date: 20060524
  Receipt Date: 20060517
  Transmission Date: 20061013
  Serious: Yes (Death, Hospitalization)
  Sender: FDA-Public Use
  Company Number: 2005-BP-21855RO

PATIENT
  Age: 81 Year
  Sex: Female

DRUGS (6)
  1. METHOTREXATE [Suspect]
     Dosage: 25 MG PER WEEK, PO
     Route: 048
  2. CARBIMAZOLE            (CARBIMAZOLE) [Concomitant]
  3. CELECOXIB      (CELECOXIB) [Concomitant]
  4. FOLIC ACID [Concomitant]
  5. OMEPRAZOLE [Concomitant]
  6. ALENDRONATE         (ALENDRONATE SODIUM) [Concomitant]

REACTIONS (4)
  - DYSPNOEA [None]
  - MUCOSAL INFLAMMATION [None]
  - PANCYTOPENIA [None]
  - SEPSIS [None]
